FAERS Safety Report 8511978-9 (Version None)
Quarter: 2012Q2

REPORT INFORMATION
  Report Type: 
  Country: None (occurrence: None)
  Receive Date: 20120406
  Receipt Date: 20100222
  Transmission Date: 20120825
  Serious: Yes (Other)
  Sender: FDA-Public Use
  Company Number: PHEH2010US02682

PATIENT
  Sex: Female

DRUGS (1)
  1. TASIGNA [Suspect]
     Indication: CHRONIC MYELOID LEUKAEMIA
     Dosage: 400 BID, ORAL ; 800 MG, ORAL
     Route: 048
     Dates: start: 20090101

REACTIONS (1)
  - LIVER FUNCTION TEST ABNORMAL [None]
